FAERS Safety Report 9553995 (Version 1)
Quarter: 2013Q3

REPORT INFORMATION
  Report Type: Spontaneous
  Country: US (occurrence: US)
  Receive Date: 20130925
  Receipt Date: 20130925
  Transmission Date: 20140515
  Serious: Yes (Hospitalization)
  Sender: FDA-Public Use
  Company Number: US-GLAXOSMITHKLINE-A1042470A

PATIENT
  Age: 68 Year
  Sex: Female

DRUGS (10)
  1. ADVAIR [Suspect]
     Indication: CHRONIC OBSTRUCTIVE PULMONARY DISEASE
     Dosage: 1PUFF TWICE PER DAY
     Route: 055
     Dates: start: 2007
  2. SPIRIVA [Concomitant]
  3. MELOXICAM [Concomitant]
  4. HYDROCODONE [Concomitant]
  5. ALENDRONATE [Concomitant]
  6. VENTOLIN [Concomitant]
  7. ZOLOFT [Concomitant]
  8. STOOL SOFTENER [Concomitant]
  9. VITAMIN D [Concomitant]
  10. UNSPECIFIED MEDICATION [Concomitant]

REACTIONS (7)
  - Spinal fracture [Recovering/Resolving]
  - Road traffic accident [Recovering/Resolving]
  - Laparoscopic surgery [Recovering/Resolving]
  - Pelvic fracture [Recovering/Resolving]
  - Back pain [Not Recovered/Not Resolved]
  - Rotator cuff syndrome [Unknown]
  - Scar [Unknown]
